FAERS Safety Report 9414079 (Version 2)
Quarter: 2013Q3

REPORT INFORMATION
  Report Type: Report from Study
  Country: CA (occurrence: CA)
  Receive Date: 20130723
  Receipt Date: 20130730
  Transmission Date: 20140515
  Serious: Yes (Other)
  Sender: FDA-Public Use
  Company Number: CA-ROCHE-1251217

PATIENT
  Age: 72 Year
  Sex: Female

DRUGS (18)
  1. RITUXAN [Suspect]
     Indication: GRANULOMATOSIS WITH POLYANGIITIS
     Route: 042
     Dates: start: 20130703
  2. CELLCEPT [Suspect]
     Indication: PRODUCT USED FOR UNKNOWN INDICATION
     Route: 065
  3. METFORMIN [Concomitant]
  4. TYLENOL [Concomitant]
     Indication: PREMEDICATION
     Route: 048
     Dates: start: 20130703
  5. BENADRYL (CANADA) [Concomitant]
     Indication: PREMEDICATION
     Route: 048
     Dates: start: 20130703
  6. ELTROXIN [Concomitant]
  7. COZAAR [Concomitant]
  8. SEPTRA DS [Concomitant]
  9. SIMBICORT [Concomitant]
  10. FERROUS GLUCONATE [Concomitant]
  11. MEDROL [Concomitant]
  12. LEUCOVORIN [Concomitant]
  13. VENTOLIN [Concomitant]
  14. ACTONEL [Concomitant]
  15. CALCIUM CARBONATE [Concomitant]
  16. VITAMIN B12 [Concomitant]
  17. PANTOLOC [Concomitant]
  18. METHYLPREDNISOLONE [Concomitant]
     Indication: PREMEDICATION
     Route: 042
     Dates: start: 20130703

REACTIONS (2)
  - Blood pressure decreased [Unknown]
  - Blood pressure increased [Unknown]
